FAERS Safety Report 10347136 (Version 2)
Quarter: 2014Q3

REPORT INFORMATION
  Report Type: Spontaneous
  Country: JP (occurrence: JP)
  Receive Date: 20140729
  Receipt Date: 20140811
  Transmission Date: 20150326
  Serious: Yes (Other)
  Sender: FDA-Public Use
  Company Number: JP-AMGEN INC.-JPNSP2014056509

PATIENT
  Age: 29 Year
  Sex: Male
  Weight: 53 kg

DRUGS (2)
  1. GRAN [Suspect]
     Active Substance: FILGRASTIM
     Indication: ALLOGENIC BONE MARROW TRANSPLANTATION THERAPY
     Dosage: 450 MCG, DAY + 5 TO DAY + 16
     Route: 065
     Dates: start: 2009
  2. CICLOSPORIN [Concomitant]
     Active Substance: CYCLOSPORINE
     Indication: ALLOGENIC BONE MARROW TRANSPLANTATION THERAPY
     Dosage: 170 MG,  DAY + 3
     Route: 065
     Dates: start: 2009

REACTIONS (3)
  - Cardiac failure acute [Recovering/Resolving]
  - Stomatitis [Recovered/Resolved]
  - Acute graft versus host disease [Recovering/Resolving]
